FAERS Safety Report 7628362-2 (Version None)
Quarter: 2011Q3

REPORT INFORMATION
  Report Type: 
  Country: None (occurrence: None)
  Receive Date: 20110711
  Receipt Date: 20110701
  Transmission Date: 20111222
  Serious: Yes (Hospitalization)
  Sender: FDA-Public Use
  Company Number: 2011028638

PATIENT
  Age: 72 Year
  Sex: Male

DRUGS (13)
  1. PRIVIGEN [Suspect]
     Indication: IMMUNODEFICIENCY
     Dosage: 10 G QD, 10 G QD, 10 G QD, 10 G QD, 10 G QD, 10 G QD
     Route: 042
     Dates: start: 20101025, end: 20101025
  2. PRIVIGEN [Suspect]
     Indication: IMMUNODEFICIENCY
     Dosage: 10 G QD, 10 G QD, 10 G QD, 10 G QD, 10 G QD, 10 G QD
     Route: 042
     Dates: start: 20110124, end: 20110124
  3. PRIVIGEN [Suspect]
     Indication: IMMUNODEFICIENCY
     Dosage: 10 G QD, 10 G QD, 10 G QD, 10 G QD, 10 G QD, 10 G QD
     Route: 042
     Dates: start: 20101227, end: 20101227
  4. PRIVIGEN [Suspect]
     Indication: IMMUNODEFICIENCY
     Dosage: 10 G QD, 10 G QD, 10 G QD, 10 G QD, 10 G QD, 10 G QD
     Route: 042
     Dates: start: 20101126, end: 20101126
  5. PRIVIGEN [Suspect]
     Indication: IMMUNODEFICIENCY
     Dosage: 10 G QD, 10 G QD, 10 G QD, 10 G QD, 10 G QD, 10 G QD
     Route: 042
     Dates: start: 20110224, end: 20110224
  6. PRIVIGEN [Suspect]
     Indication: IMMUNODEFICIENCY
     Dosage: 10 G QD, 10 G QD, 10 G QD, 10 G QD, 10 G QD, 10 G QD
     Route: 042
     Dates: start: 20110324, end: 20110324
  7. HCT HEXAL (HYDROCHLOROTHIAZIDE) [Concomitant]
  8. RAMIPRIL [Concomitant]
  9. BICANORM (SODIUM CARBONATE ANHYDROUS) [Concomitant]
  10. PRIVIGEN [Suspect]
  11. ASPIRIN [Concomitant]
  12. FURORESE /00032601/ (FUROSEMIDE) [Concomitant]
  13. PRIVIGEN [Suspect]

REACTIONS (8)
  - PRODUCTIVE COUGH [None]
  - LUNG INFECTION [None]
  - PAPILLOMA [None]
  - CHILLS [None]
  - SINUSITIS [None]
  - CEREBRAL ARTERY STENOSIS [None]
  - PYREXIA [None]
  - HYPOAESTHESIA [None]
